FAERS Safety Report 14743949 (Version 4)
Quarter: 2018Q2

REPORT INFORMATION
  Report Type: Spontaneous
  Country: US (occurrence: US)
  Receive Date: 20180411
  Receipt Date: 20180508
  Transmission Date: 20180711
  Serious: No
  Sender: FDA-Public Use
  Company Number: US-BIOGEN-2018BI00550917

PATIENT
  Age: 67 Year
  Sex: Female

DRUGS (2)
  1. AVONEX [Suspect]
     Active Substance: INTERFERON BETA-1A
     Indication: MULTIPLE SCLEROSIS
     Route: 030
     Dates: start: 20030821, end: 20171201
  2. AVONEX [Suspect]
     Active Substance: INTERFERON BETA-1A
     Route: 030

REACTIONS (12)
  - Dysarthria [Unknown]
  - Fear [Unknown]
  - Depression [Unknown]
  - Tremor [Not Recovered/Not Resolved]
  - Aphasia [Not Recovered/Not Resolved]
  - Musculoskeletal disorder [Unknown]
  - Gait disturbance [Not Recovered/Not Resolved]
  - Memory impairment [Unknown]
  - Pain [Unknown]
  - Cognitive disorder [Not Recovered/Not Resolved]
  - Musculoskeletal stiffness [Not Recovered/Not Resolved]
  - Speech disorder [Not Recovered/Not Resolved]

NARRATIVE: CASE EVENT DATE: 201801
